FAERS Safety Report 22155233 (Version 2)
Quarter: 2023Q2

REPORT INFORMATION
  Report Type: Report from Study
  Country: US (occurrence: None)
  Receive Date: 20230330
  Receipt Date: 20230417
  Transmission Date: 20230722
  Serious: Yes (Other)
  Sender: FDA-Public Use
  Company Number: US-ROCHE-3224126

PATIENT
  Age: 55 Year
  Sex: Male
  Weight: 73.1 kg

DRUGS (32)
  1. GLOFITAMAB [Suspect]
     Active Substance: GLOFITAMAB
     Indication: Diffuse large B-cell lymphoma
     Dosage: ON 14/NOV/2022, RECEIVED MOST RECENT DOSE OF GLOFITAMAB AT 2.5 MG PRIOR TO EVENT ONSET DATE.
     Route: 042
     Dates: start: 20221114
  2. OBINUTUZUMAB [Suspect]
     Active Substance: OBINUTUZUMAB
     Indication: Diffuse large B-cell lymphoma
     Dosage: ON 07/NOV/2022, HE RECEIVED MOST RECENT DOSE OF OBINUTUZUMAB AT 1000 MG PRIOR TO EVENT ONSET DATE.
     Route: 042
     Dates: start: 20221107
  3. TOCILIZUMAB [Suspect]
     Active Substance: TOCILIZUMAB
     Indication: Diffuse large B-cell lymphoma
     Route: 042
     Dates: start: 20221115
  4. TOCILIZUMAB [Suspect]
     Active Substance: TOCILIZUMAB
     Indication: Cytokine release syndrome
  5. IFOSFAMIDE [Suspect]
     Active Substance: IFOSFAMIDE
     Indication: Diffuse large B-cell lymphoma
     Dosage: ON 08/NOV/2022, HE RECEIVED MOST RECENT DOSE OF IFOSFAMIDE OF 9300 MG PRIOR TO EVENT ONSET DATE.
     Route: 042
     Dates: start: 20221108
  6. CARBOPLATIN [Suspect]
     Active Substance: CARBOPLATIN
     Indication: Diffuse large B-cell lymphoma
     Dosage: ON 08/NOV/2022, HE RECEIVED MOST RECENT DOSE OF CARBOPLATIN OF 594 MG PRIOR TO EVENT ONSET DATE.
     Route: 042
     Dates: start: 20221108
  7. ETOPOSIDE [Suspect]
     Active Substance: ETOPOSIDE
     Indication: Diffuse large B-cell lymphoma
     Dosage: ON 09/NOV/2022, HE RECEIVED MOST RECENT DOSE OF ETOPOSIDE OF 186 MG  PRIOR TO EVENT ONSET DATE.
     Route: 042
     Dates: start: 20221108
  8. MESNA [Suspect]
     Active Substance: MESNA
     Indication: Diffuse large B-cell lymphoma
     Dosage: ON 08/NOV/2022, HE RECEIVED MOST RECENT DOSE OF MESNA OF 9300 MG PRIOR TO EVENT ONSET DATE.
     Route: 042
     Dates: start: 20221108
  9. ACYCLOVIR [Concomitant]
     Active Substance: ACYCLOVIR
     Route: 048
     Dates: start: 20221114
  10. METHADONE [Concomitant]
     Active Substance: METHADONE HYDROCHLORIDE
     Route: 048
     Dates: start: 2019
  11. DEMEROL [Concomitant]
     Active Substance: MEPERIDINE HYDROCHLORIDE
     Indication: Infusion related reaction
     Route: 042
     Dates: start: 20221107, end: 20221107
  12. SOLU-CORTEF [Concomitant]
     Active Substance: HYDROCORTISONE SODIUM SUCCINATE
     Indication: Infusion related reaction
     Route: 042
     Dates: start: 20221107, end: 20221107
  13. TYLENOL [Concomitant]
     Active Substance: ACETAMINOPHEN
     Indication: Pyrexia
     Route: 048
     Dates: start: 20221107, end: 20221107
  14. TYLENOL [Concomitant]
     Active Substance: ACETAMINOPHEN
     Route: 048
     Dates: start: 20221114, end: 20221114
  15. ONDANSETRON [Concomitant]
     Active Substance: ONDANSETRON
     Indication: Nausea
     Route: 048
     Dates: start: 20221001
  16. ALLOPURINOL [Concomitant]
     Active Substance: ALLOPURINOL
     Route: 048
     Dates: start: 20221114
  17. ACETAMINOPHEN [Concomitant]
     Active Substance: ACETAMINOPHEN
     Indication: Cytokine release syndrome
     Route: 048
     Dates: start: 20221115, end: 20221115
  18. ACETAMINOPHEN [Concomitant]
     Active Substance: ACETAMINOPHEN
     Indication: Pyrexia
     Route: 048
     Dates: start: 20221121, end: 20221121
  19. ACETAMINOPHEN [Concomitant]
     Active Substance: ACETAMINOPHEN
     Indication: Febrile neutropenia
  20. VANCOMYCIN [Concomitant]
     Active Substance: VANCOMYCIN
     Indication: Febrile neutropenia
     Route: 042
     Dates: start: 20221115, end: 20221116
  21. AZTREONAM [Concomitant]
     Active Substance: AZTREONAM
     Indication: Febrile neutropenia
     Route: 042
     Dates: start: 20221115, end: 20221116
  22. NICOTINE [Concomitant]
     Active Substance: NICOTINE
     Indication: Ex-tobacco user
     Route: 062
     Dates: start: 20221107
  23. DEXAMETHASONE [Concomitant]
     Active Substance: DEXAMETHASONE
     Route: 042
     Dates: start: 20221107, end: 20221107
  24. DEXAMETHASONE [Concomitant]
     Active Substance: DEXAMETHASONE
     Route: 042
     Dates: start: 20221114, end: 20221114
  25. DEXAMETHASONE [Concomitant]
     Active Substance: DEXAMETHASONE
     Route: 042
     Dates: start: 20221121, end: 20221121
  26. LEVOFLOXACIN [Concomitant]
     Active Substance: LEVOFLOXACIN
     Route: 048
     Dates: start: 20221122
  27. HEROIN [Concomitant]
     Active Substance: DIAMORPHINE
  28. DIPHENHYDRAMINE [Concomitant]
     Active Substance: DIPHENHYDRAMINE
     Route: 048
     Dates: start: 20221107, end: 20221107
  29. DIPHENHYDRAMINE [Concomitant]
     Active Substance: DIPHENHYDRAMINE
     Route: 048
     Dates: start: 20221114, end: 20221114
  30. DIPHENHYDRAMINE [Concomitant]
     Active Substance: DIPHENHYDRAMINE
     Route: 048
     Dates: start: 20221121, end: 20221121
  31. COCAINE [Concomitant]
     Active Substance: COCAINE
     Route: 065
  32. NEULASTA [Concomitant]
     Active Substance: PEGFILGRASTIM
     Route: 058
     Dates: start: 20221109, end: 20221109

REACTIONS (2)
  - Aspartate aminotransferase increased [Recovered/Resolved]
  - Alanine aminotransferase increased [Recovered/Resolved]

NARRATIVE: CASE EVENT DATE: 20221109
